FAERS Safety Report 5752731-9 (Version None)
Quarter: 2008Q2

REPORT INFORMATION
  Report Type: 
  Country: None (occurrence: None)
  Receive Date: 20080527
  Receipt Date: 20080527
  Transmission Date: 20081010
  Serious: Yes (Other)
  Sender: FDA-Public Use
  Company Number: None

PATIENT
  Age: 17 Year
  Sex: Female
  Weight: 72.5755 kg

DRUGS (2)
  1. BUPROPION HCL [Suspect]
     Indication: ATTENTION DEFICIT/HYPERACTIVITY DISORDER
     Dosage: 50MG BID PO
     Route: 048
     Dates: start: 20080430, end: 20080519
  2. BUPROPION HCL [Suspect]
     Indication: DEPRESSION
     Dosage: 50MG BID PO
     Route: 048
     Dates: start: 20080430, end: 20080519

REACTIONS (6)
  - AMNESIA [None]
  - CONVULSION [None]
  - DYSPNOEA [None]
  - FALL [None]
  - SOMNOLENCE [None]
  - UNRESPONSIVE TO STIMULI [None]
